FAERS Safety Report 25312456 (Version 1)
Quarter: 2025Q2

REPORT INFORMATION
  Report Type: Spontaneous
  Country: US (occurrence: None)
  Receive Date: 20250513
  Receipt Date: 20250513
  Transmission Date: 20250717
  Serious: No
  Sender: FDA-CTU
  Company Number: None

PATIENT

DRUGS (1)
  1. TADALAFIL [Suspect]
     Active Substance: TADALAFIL

REACTIONS (5)
  - Blood pressure decreased [None]
  - Vomiting [None]
  - Dysstasia [None]
  - Dehydration [None]
  - Vertigo [None]

NARRATIVE: CASE EVENT DATE: 20250424
